FAERS Safety Report 4964510-0 (Version None)
Quarter: 2006Q2

REPORT INFORMATION
  Report Type: 
  Country: None (occurrence: None)
  Receive Date: 20060331
  Receipt Date: 20060329
  Transmission Date: 20061013
  Serious: Yes (Hospitalization)
  Sender: FDA-Public Use
  Company Number: 200510689BFR

PATIENT
  Age: 76 Year
  Sex: Female

DRUGS (7)
  1. CIFLOX               (CIPROFLOXACIN) [Suspect]
     Dates: start: 20050602, end: 20050607
  2. ROCEPHIN [Suspect]
     Indication: PYELONEPHRITIS
     Dates: start: 20050530, end: 20050607
  3. VASTAREL [Concomitant]
  4. KARDEGIC [Concomitant]
  5. BISOPROLOL [Concomitant]
  6. FLUDEX [Concomitant]
  7. LASIXIL [Concomitant]

REACTIONS (17)
  - BLOOD PRESSURE DECREASED [None]
  - BLOOD URIC ACID INCREASED [None]
  - CHEILITIS [None]
  - CONDITION AGGRAVATED [None]
  - DEHYDRATION [None]
  - DRUG ERUPTION [None]
  - GLOMERULONEPHRITIS [None]
  - LEUKOCYTOSIS [None]
  - NEPHRITIS INTERSTITIAL [None]
  - ORAL MUCOSA EROSION [None]
  - ORAL SOFT TISSUE DISORDER [None]
  - PYREXIA [None]
  - RASH MACULO-PAPULAR [None]
  - RASH PUSTULAR [None]
  - RENAL FAILURE [None]
  - SCAB [None]
  - TONGUE BLISTERING [None]
